FAERS Safety Report 4367896-3 (Version None)
Quarter: 2004Q2

REPORT INFORMATION
  Report Type: 
  Country: None (occurrence: None)
  Receive Date: 20040601
  Receipt Date: 20040601
  Transmission Date: 20050107
  Serious: Yes (Life-Threatening, Hospitalization)
  Sender: FDA-Public Use
  Company Number: None

PATIENT
  Sex: Female
  Weight: 62.7 kg

DRUGS (4)
  1. METAIODOBENZYLGUANIDINE (1-MIBG), IND 32, 147 [Suspect]
     Indication: NEUROBLASTOMA
     Dosage: 15 MCI/KG IV
     Route: 042
     Dates: start: 20040423
  2. CARBOPLATIN [Suspect]
     Dosage: 1500 MG/M2 IV
     Route: 042
     Dates: start: 20040505, end: 20040508
  3. ETOPOSIDE [Suspect]
     Dosage: 1200 MG/M2 IV
     Route: 042
     Dates: start: 20040505, end: 20040508
  4. MELPHALAN [Suspect]
     Dosage: 210 MG/M2 IV
     Route: 042

REACTIONS (7)
  - ASCITES [None]
  - HEPATOSPLENOMEGALY [None]
  - HYPERBILIRUBINAEMIA [None]
  - STEM CELL TRANSPLANT [None]
  - TRANSAMINASES INCREASED [None]
  - VENOOCCLUSIVE DISEASE [None]
  - WEIGHT INCREASED [None]
